FAERS Safety Report 23433714 (Version 1)
Quarter: 2024Q1

REPORT INFORMATION
  Report Type: Spontaneous
  Country: FR (occurrence: FR)
  Receive Date: 20240123
  Receipt Date: 20240123
  Transmission Date: 20240409
  Serious: Yes (Hospitalization)
  Sender: FDA-Public Use
  Company Number: None

PATIENT
  Age: 15 Year
  Sex: Female
  Weight: 81 kg

DRUGS (6)
  1. FLUOXETINE HYDROCHLORIDE [Suspect]
     Active Substance: FLUOXETINE HYDROCHLORIDE
     Indication: Depression
     Dosage: 40 MG, UNKNOWN
     Route: 048
     Dates: start: 20220830, end: 20231205
  2. VINCRISTINE SULFATE [Suspect]
     Active Substance: VINCRISTINE SULFATE
     Indication: Hodgkin^s disease
     Dosage: D1, 21D CYCLE
     Route: 042
     Dates: start: 20231127, end: 20231127
  3. DACARBAZINE [Suspect]
     Active Substance: DACARBAZINE
     Indication: Hodgkin^s disease
     Dosage: D1, D2, D3, 21D CYCLE
     Route: 042
     Dates: start: 20231127, end: 20231130
  4. CYCLOPHOSPHAMIDE [Suspect]
     Active Substance: CYCLOPHOSPHAMIDE
     Indication: Hodgkin^s disease
     Dosage: D1 AND D2, 21D CYCLE
     Route: 042
     Dates: start: 20231127, end: 20231128
  5. DOXORUBICIN [Suspect]
     Active Substance: DOXORUBICIN
     Indication: Hodgkin^s disease
     Dosage: D1, 21D CYCLE
     Route: 042
     Dates: start: 20231127, end: 20231127
  6. ETOPOSIDE [Suspect]
     Active Substance: ETOPOSIDE
     Indication: Hodgkin^s disease
     Dosage: D1, D2 AND D3, 21 DAY CYCLE
     Route: 042
     Dates: start: 20231127, end: 20231130

REACTIONS (5)
  - Postural orthostatic tachycardia syndrome [Recovering/Resolving]
  - Autonomic nervous system imbalance [Recovering/Resolving]
  - Abdominal pain [Recovered/Resolved]
  - Electrocardiogram QT prolonged [Recovered/Resolved]
  - Orthostatic hypotension [Recovering/Resolving]

NARRATIVE: CASE EVENT DATE: 20231205
